FAERS Safety Report 7484805-9 (Version None)
Quarter: 2011Q2

REPORT INFORMATION
  Report Type: 
  Country: None (occurrence: None)
  Receive Date: 20110517
  Receipt Date: 20110510
  Transmission Date: 20111010
  Serious: Yes (Other)
  Sender: FDA-Public Use
  Company Number: B0718991A

PATIENT
  Age: 47 Year
  Sex: Female

DRUGS (1)
  1. ALLI [Suspect]
     Route: 048
     Dates: start: 20110401

REACTIONS (4)
  - STEATORRHOEA [None]
  - HAEMATOCHEZIA [None]
  - CHROMATURIA [None]
  - FAECES DISCOLOURED [None]
